FAERS Safety Report 9318104 (Version 1)
Quarter: 2013Q2

REPORT INFORMATION
  Report Type: Spontaneous
  Country: US (occurrence: US)
  Receive Date: 20130530
  Receipt Date: 20130530
  Transmission Date: 20140414
  Serious: No
  Sender: FDA-Public Use
  Company Number: US-NOVEN-13US006504

PATIENT
  Age: 16 Year
  Sex: Female
  Weight: 48.53 kg

DRUGS (1)
  1. DAYTRANA [Suspect]
     Indication: ATTENTION DEFICIT/HYPERACTIVITY DISORDER
     Dosage: 30 MG, UNK
     Route: 062
     Dates: start: 2010

REACTIONS (6)
  - Psychomotor hyperactivity [Not Recovered/Not Resolved]
  - Drug ineffective [Not Recovered/Not Resolved]
  - Increased appetite [Not Recovered/Not Resolved]
  - Decreased appetite [Recovered/Resolved]
  - Drug dose omission [Recovered/Resolved]
  - Product quality issue [Recovered/Resolved]
